FAERS Safety Report 9204025 (Version 1)
Quarter: 2013Q2

REPORT INFORMATION
  Report Type: Spontaneous
  Country: AU (occurrence: AU)
  Receive Date: 20130402
  Receipt Date: 20130402
  Transmission Date: 20140414
  Serious: Yes (Hospitalization, Other)
  Sender: FDA-Public Use
  Company Number: AU-ELI_LILLY_AND_COMPANY-AU201303009077

PATIENT
  Age: 48 Year
  Sex: Male

DRUGS (5)
  1. PROZAC [Suspect]
     Indication: OBSESSIVE-COMPULSIVE DISORDER
     Dosage: 80 MG, QD
     Dates: start: 1993
  2. PROZAC [Suspect]
     Dosage: 20 MG, BID
  3. FLUOXETINE [Concomitant]
     Dosage: UNK
  4. OMEPRAZOLE [Concomitant]
  5. NAMENDA [Concomitant]

REACTIONS (4)
  - Dementia [Recovering/Resolving]
  - Abnormal behaviour [Recovering/Resolving]
  - Mental impairment [Recovering/Resolving]
  - Sluggishness [Recovering/Resolving]
